FAERS Safety Report 10856708 (Version 5)
Quarter: 2015Q2

REPORT INFORMATION
  Report Type: Report from Study
  Country: DE (occurrence: DE)
  Receive Date: 20150223
  Receipt Date: 20150527
  Transmission Date: 20150821
  Serious: Yes (Other)
  Sender: FDA-Public Use
  Company Number: DE-INCYTE CORPORATION-2015IN000594

PATIENT
  Sex: Male
  Weight: 92 kg

DRUGS (11)
  1. INCB018424 [Suspect]
     Active Substance: RUXOLITINIB
     Dosage: 1 DF QD (15 MG)
     Route: 048
     Dates: start: 20130308, end: 20131008
  2. ORAYCEA [Concomitant]
     Active Substance: DOXYCYCLINE
     Indication: ROSACEA
     Dosage: 40 MG, QD
     Route: 065
     Dates: start: 20120628
  3. ADENURIC [Concomitant]
     Active Substance: FEBUXOSTAT
     Indication: PRODUCT USED FOR UNKNOWN INDICATION
     Dosage: 40 MG, QD
     Route: 065
     Dates: start: 20120628
  4. ASPIRIN. [Concomitant]
     Active Substance: ASPIRIN
     Indication: PRURITUS
     Dosage: 100 MG, QD
     Route: 065
     Dates: start: 20130923, end: 20131107
  5. INCB018424 [Suspect]
     Active Substance: RUXOLITINIB
     Dosage: 1 DF QD (20 MG)
     Route: 048
     Dates: start: 20140228
  6. INCB018424 [Suspect]
     Active Substance: RUXOLITINIB
     Indication: MYELOFIBROSIS
     Dosage: 2 DF, QD (15 MG)
     Route: 048
     Dates: start: 20121011, end: 20121029
  7. INCB018424 [Suspect]
     Active Substance: RUXOLITINIB
     Dosage: 1 DF, QD (15 MG)
     Route: 048
     Dates: start: 20121109, end: 20130110
  8. INCB018424 [Suspect]
     Active Substance: RUXOLITINIB
     Dosage: 1 DF QD (15 MG)
     Route: 048
     Dates: start: 20131012, end: 20131105
  9. INCB018424 [Suspect]
     Active Substance: RUXOLITINIB
     Dosage: 1 DF QD (15 MG)
     Route: 048
     Dates: start: 20131109, end: 20140227
  10. ADENURIC [Concomitant]
     Active Substance: FEBUXOSTAT
     Indication: HYPERURICAEMIA
  11. INCB018424 [Suspect]
     Active Substance: RUXOLITINIB
     Dosage: 22 MG, QD
     Route: 048
     Dates: start: 20130111, end: 20130307

REACTIONS (2)
  - Haemorrhoids [Recovering/Resolving]
  - White blood cell count increased [Unknown]

NARRATIVE: CASE EVENT DATE: 20130321
